FAERS Safety Report 6764582-7 (Version None)
Quarter: 2010Q2

REPORT INFORMATION
  Report Type: 
  Country: None (occurrence: None)
  Receive Date: 20100609
  Receipt Date: 20100503
  Transmission Date: 20101027
  Serious: No
  Sender: FDA-Public Use
  Company Number: 2010010452

PATIENT
  Age: 76 Year
  Sex: Female
  Weight: 74.8435 kg

DRUGS (4)
  1. CHILDREN'S ZYRTEC ALLERGY [Suspect]
     Indication: FOOD ALLERGY
     Dosage: 1 TEASPOONFUL AS NEEDED, ORAL
     Route: 048
  2. MAXIDEX (BENZALKONIUM CHLORIDE, DEXAMETHASONE, PHENYLMERCURIC NITRATE) [Concomitant]
  3. LEVOTHYROXINE SODIUM [Concomitant]
  4. FENOFIBRATE [Concomitant]

REACTIONS (4)
  - OFF LABEL USE [None]
  - PRODUCT QUALITY ISSUE [None]
  - THERAPEUTIC RESPONSE UNEXPECTED [None]
  - WRONG DRUG ADMINISTERED [None]
